FAERS Safety Report 8016715 (Version 4)
Quarter: 2013Q4

REPORT INFORMATION
  Report Type: Report from Study
  Country: PR (occurrence: US)
  Receive Date: 20110630
  Receipt Date: 20131015
  Transmission Date: 20140711
  Serious: Yes (Other)
  Sender: FDA-Public Use
  Company Number: US-ACTELION-A-US2011-50875

PATIENT
  Age: 75 Year
  Sex: Male

DRUGS (3)
  1. TRACLEER [Suspect]
     Indication: PULMONARY ARTERIAL HYPERTENSION
     Dosage: 62.5 MG, BID
     Route: 048
     Dates: start: 20100819
  2. TRACLEER [Suspect]
     Dosage: 125 MG, BID
     Route: 048
     Dates: start: 2010
  3. COUMADIN [Concomitant]

REACTIONS (15)
  - Visual impairment [Recovering/Resolving]
  - Blindness transient [Not Recovered/Not Resolved]
  - Eye operation [Recovering/Resolving]
  - Vision blurred [Unknown]
  - Dyspnoea [Unknown]
  - Weight decreased [Unknown]
  - Mobility decreased [Unknown]
  - Dyspnoea exertional [Unknown]
  - Decreased appetite [Unknown]
  - Asthenia [Unknown]
  - Listless [Unknown]
  - Fatigue [Unknown]
  - Nasal congestion [Unknown]
  - Fluid retention [Not Recovered/Not Resolved]
  - Drug dose omission [Not Recovered/Not Resolved]
